FAERS Safety Report 14298511 (Version 1)
Quarter: 2017Q4

REPORT INFORMATION
  Report Type: Spontaneous
  Country: US (occurrence: US)
  Receive Date: 20171216
  Receipt Date: 20171216
  Transmission Date: 20180321
  Serious: No
  Sender: FDA-Public Use
  Company Number: None

PATIENT
  Age: 64 Year
  Sex: Male

DRUGS (5)
  1. LASIX [Concomitant]
     Active Substance: FUROSEMIDE
  2. BENAZEPRIL [Concomitant]
     Active Substance: BENAZEPRIL HYDROCHLORIDE
  3. NYSTATIN. [Concomitant]
     Active Substance: NYSTATIN
  4. DECADRON [Concomitant]
     Active Substance: DEXAMETHASONE
  5. TEMOZOLOMIDE CAP 180MG [Suspect]
     Active Substance: TEMOZOLOMIDE
     Route: 048
     Dates: start: 20171110

REACTIONS (4)
  - Oedema [None]
  - Neuropathy peripheral [None]
  - Oral fungal infection [None]
  - Peripheral swelling [None]

NARRATIVE: CASE EVENT DATE: 20171212
